FAERS Safety Report 13050001 (Version 10)
Quarter: 2017Q3

REPORT INFORMATION
  Report Type: Spontaneous
  Country: US (occurrence: US)
  Receive Date: 20161221
  Receipt Date: 20170717
  Transmission Date: 20171127
  Serious: Yes (Hospitalization, Congenital Anomaly, Other)
  Sender: FDA-Public Use
  Company Number: PHEH2016US033219

PATIENT
  Sex: Female

DRUGS (3)
  1. ZOFRAN ODT [Suspect]
     Active Substance: ONDANSETRON HYDROCHLORIDE
     Indication: FOETAL EXPOSURE DURING PREGNANCY
     Route: 064
  2. ZOFRAN [Suspect]
     Active Substance: ONDANSETRON HYDROCHLORIDE
     Indication: FOETAL EXPOSURE DURING PREGNANCY
     Route: 064
  3. ZOFRAN [Suspect]
     Active Substance: ONDANSETRON HYDROCHLORIDE
     Indication: FOETAL EXPOSURE DURING PREGNANCY
     Route: 064

REACTIONS (47)
  - Congenital hydronephrosis [Unknown]
  - Wrist fracture [Unknown]
  - Pulmonary tuberculosis [Unknown]
  - Abdominal pain [Unknown]
  - Urinary retention [Unknown]
  - Foetal exposure during pregnancy [Unknown]
  - Migraine [Unknown]
  - Pain in extremity [Unknown]
  - Generalised anxiety disorder [Unknown]
  - Sacralisation [Unknown]
  - Major depression [Unknown]
  - Joint dislocation [Unknown]
  - Fall [Unknown]
  - Essential hypertension [Unknown]
  - Arthritis [Unknown]
  - Obesity [Unknown]
  - Congenital cystic kidney disease [Unknown]
  - Foot fracture [Unknown]
  - Scar [Unknown]
  - Vitamin D deficiency [Unknown]
  - Chest pain [Unknown]
  - Headache [Unknown]
  - Vesicoureteric reflux [Unknown]
  - Rhinitis allergic [Unknown]
  - Hypothyroidism [Unknown]
  - Dermal sinus [Unknown]
  - Glycosuria [Unknown]
  - Arteriosclerosis coronary artery [Unknown]
  - Intervertebral disc degeneration [Unknown]
  - Eye pain [Unknown]
  - Autoimmune thyroiditis [Unknown]
  - Nasal septum deviation [Unknown]
  - Hyperlipidaemia [Unknown]
  - Back pain [Unknown]
  - Swelling face [Unknown]
  - Urinary tract infection [Unknown]
  - Painful respiration [Unknown]
  - Soft tissue swelling [Unknown]
  - Contusion [Unknown]
  - Anxiety [Unknown]
  - Constipation [Unknown]
  - Epistaxis [Unknown]
  - Muscle spasms [Unknown]
  - Pneumonia [Unknown]
  - Weight increased [Unknown]
  - Facet joint syndrome [Unknown]
  - Dyspnoea [Unknown]
